FAERS Safety Report 19701572 (Version 1)
Quarter: 2021Q3

REPORT INFORMATION
  Report Type: Spontaneous
  Country: US (occurrence: US)
  Receive Date: 20210813
  Receipt Date: 20210813
  Transmission Date: 20211014
  Serious: No
  Sender: FDA-Public Use
  Company Number: US-TAKEDA-2021TUS050680

PATIENT
  Sex: Male

DRUGS (1)
  1. DEXILANT [Suspect]
     Active Substance: DEXLANSOPRAZOLE
     Indication: GASTRIC DISORDER
     Dosage: 60 MILLIGRAM, QD
     Route: 065
     Dates: start: 20210326

REACTIONS (3)
  - Product storage error [Unknown]
  - No adverse event [Unknown]
  - Product use in unapproved indication [Unknown]
